FAERS Safety Report 15364480 (Version 1)
Quarter: 2018Q3

REPORT INFORMATION
  Report Type: Spontaneous
  Country: DE (occurrence: DE)
  Receive Date: 20180909
  Receipt Date: 20180909
  Transmission Date: 20181010
  Serious: Yes (Disabling)
  Sender: FDA-Public Use
  Company Number: PHHY2018DE092298

PATIENT

DRUGS (5)
  1. ZOLPIDEM [Suspect]
     Active Substance: ZOLPIDEM\ZOLPIDEM TARTRATE
     Indication: DEPRESSION
     Dosage: MATERNAL DOSE: 20 MG, UNK (ANWENDUNG AN 2 TAGEN IM O G ZEITRAUM)
     Route: 064
     Dates: start: 20180412, end: 20180607
  2. ZOLPIDEM [Suspect]
     Active Substance: ZOLPIDEM\ZOLPIDEM TARTRATE
     Indication: RESTLESSNESS
  3. ATOSIL [Suspect]
     Active Substance: PROMETHAZINE HYDROCHLORIDE
     Indication: RESTLESSNESS
     Dosage: MATERNAL DOSE: BIS 30 TROPFEN
     Route: 064
  4. MARIJUANA [Concomitant]
     Active Substance: CANNABIS SATIVA SUBSP. INDICA TOP
     Indication: FOETAL EXPOSURE DURING PREGNANCY
     Dosage: UNK (PRAEKONZEPTIONELL 3?5X WOECHENTLICH)
     Route: 065
  5. ATOSIL [Suspect]
     Active Substance: PROMETHAZINE HYDROCHLORIDE
     Indication: DEPRESSION

REACTIONS (2)
  - Gastroschisis [Not Recovered/Not Resolved]
  - Foetal exposure during pregnancy [Not Recovered/Not Resolved]

NARRATIVE: CASE EVENT DATE: 2018
